FAERS Safety Report 5362493-5 (Version None)
Quarter: 2007Q2

REPORT INFORMATION
  Report Type: 
  Country: None (occurrence: None)
  Receive Date: 20070619
  Receipt Date: 20070604
  Transmission Date: 20071010
  Serious: Yes (Hospitalization, Other)
  Sender: FDA-Public Use
  Company Number: SE-SHR-SE-2006-035313

PATIENT
  Age: 65 Year
  Sex: Male

DRUGS (9)
  1. CAMPATH [Suspect]
     Dosage: 3 MG, 1 DOSE
     Route: 042
     Dates: start: 20060718, end: 20060718
  2. CAMPATH [Suspect]
     Dosage: 10 MG, 1 DOSE
     Route: 042
     Dates: start: 20060719, end: 20060719
  3. CAMPATH [Suspect]
     Dosage: 30 MG, 1 DOSE
     Route: 042
     Dates: start: 20060720, end: 20060720
  4. CAMPATH [Suspect]
     Dosage: 30 MG, 1X/DAY
     Route: 042
     Dates: start: 20060724, end: 20060726
  5. FLUDARA [Suspect]
     Dosage: 50 MG, 1X/DAY
     Route: 042
     Dates: start: 20060724, end: 20060726
  6. CLEMASTINE FUMARATE [Concomitant]
     Dosage: 1 MG, 1X/DAY
     Dates: start: 20060717
  7. CALCIUM CARBONATE [Concomitant]
     Indication: OSTEOPOROSIS
     Dosage: 1 G, 1X/DAY
     Dates: start: 20040108
  8. RISEDRONIC ACID [Concomitant]
     Indication: OSTEOPOROSIS
     Dosage: 35 MG, 1X/WEEK
     Dates: start: 20040819
  9. SULFAMETHOXAZOLE W/TRIMETHOPRIM [Concomitant]
     Indication: PROPHYLAXIS
     Dosage: UNK, UNK
     Dates: start: 20060719

REACTIONS (3)
  - ANAEMIA HAEMOLYTIC AUTOIMMUNE [None]
  - AUTOIMMUNE NEUTROPENIA [None]
  - LEUKOPENIA [None]
